FAERS Safety Report 5320150-5 (Version None)
Quarter: 2007Q2

REPORT INFORMATION
  Report Type: 
  Country: None (occurrence: None)
  Receive Date: 20070503
  Receipt Date: 20070423
  Transmission Date: 20071010
  Serious: Yes (Other)
  Sender: FDA-Public Use
  Company Number: 2007SP005295

PATIENT
  Age: 59 Year
  Sex: Male
  Weight: 90.7194 kg

DRUGS (3)
  1. CLARINEX [Suspect]
     Indication: RHINITIS ALLERGIC
     Dosage: 2.5 MG; QD; PO
     Route: 048
     Dates: start: 20070201
  2. ACIPHEX [Concomitant]
  3. SINGULAIR [Concomitant]

REACTIONS (5)
  - DIZZINESS [None]
  - HYPERSOMNIA [None]
  - LOSS OF CONSCIOUSNESS [None]
  - ROAD TRAFFIC ACCIDENT [None]
  - WRONG DRUG ADMINISTERED [None]
